FAERS Safety Report 7804057-7 (Version None)
Quarter: 2011Q4

REPORT INFORMATION
  Report Type: 
  Country: None (occurrence: None)
  Receive Date: 20111010
  Receipt Date: 20110930
  Transmission Date: 20120403
  Serious: Yes (Other)
  Sender: FDA-Public Use
  Company Number: GB-UCBSA-042652

PATIENT
  Age: 6 Year
  Sex: Male

DRUGS (1)
  1. KEPPRA [Suspect]

REACTIONS (6)
  - TOOTH LOSS [None]
  - RASH [None]
  - LIP SWELLING [None]
  - MUSCULAR WEAKNESS [None]
  - STOMATITIS [None]
  - ORAL PAIN [None]
